FAERS Safety Report 10586758 (Version 1)
Quarter: 2014Q4

REPORT INFORMATION
  Report Type: Spontaneous
  Country: US (occurrence: US)
  Receive Date: 20141117
  Receipt Date: 20141117
  Transmission Date: 20150529
  Serious: Yes (Other)
  Sender: FDA-Public Use
  Company Number: US-GLAXOSMITHKLINE-US2014GSK020138

PATIENT
  Sex: Male

DRUGS (2)
  1. AVANDARYL [Suspect]
     Active Substance: GLIMEPIRIDE\ROSIGLITAZONE MALEATE
     Indication: DIABETES MELLITUS
     Dosage: UNK
     Dates: start: 200603, end: 200706
  2. AVANDIA [Suspect]
     Active Substance: ROSIGLITAZONE MALEATE
     Indication: DIABETES MELLITUS
     Dosage: 8 MG, BID
     Dates: start: 200601, end: 200604

REACTIONS (3)
  - Arteriosclerosis coronary artery [Unknown]
  - Coronary artery disease [Unknown]
  - Cardiac failure congestive [Unknown]
